FAERS Safety Report 25509396 (Version 1)
Quarter: 2025Q3

REPORT INFORMATION
  Report Type: Spontaneous
  Country: US (occurrence: US)
  Receive Date: 20250703
  Receipt Date: 20250703
  Transmission Date: 20251021
  Serious: Yes (Hospitalization, Other)
  Sender: Norvium Bioscience
  Company Number: US-Norvium Bioscience LLC-080345

PATIENT
  Age: 40 Year
  Sex: Male
  Weight: 0 kg

DRUGS (5)
  1. CISPLATIN [Suspect]
     Active Substance: CISPLATIN
     Indication: Malignant neoplasm of thorax
  2. CARBOPLATIN [Suspect]
     Active Substance: CARBOPLATIN
     Indication: Malignant neoplasm of thorax
  3. ETOPOSIDE [Suspect]
     Active Substance: ETOPOSIDE
     Indication: Malignant neoplasm of thorax
  4. ATEZOLIZUMAB [Suspect]
     Active Substance: ATEZOLIZUMAB
     Indication: Malignant neoplasm of thorax
  5. ATEZOLIZUMAB [Suspect]
     Active Substance: ATEZOLIZUMAB
     Indication: Malignant neoplasm of thorax
     Dosage: EVERY 21 DAYS, ON MAINTENANCE

REACTIONS (2)
  - Pancytopenia [Unknown]
  - Femoral neck fracture [Unknown]
